FAERS Safety Report 9886521 (Version 1)
Quarter: 2014Q1

REPORT INFORMATION
  Report Type: Spontaneous
  Country: FR (occurrence: FR)
  Receive Date: 20140210
  Receipt Date: 20140210
  Transmission Date: 20141002
  Serious: Yes (Other)
  Sender: FDA-Public Use
  Company Number: FR-ACTAVIS-2014-02155

PATIENT
  Age: 77 Year
  Sex: Male

DRUGS (15)
  1. CLOPIDOGREL ARROW [Suspect]
     Indication: PRODUCT USED FOR UNKNOWN INDICATION
     Dosage: 1 DF, DAILY
     Route: 065
     Dates: start: 20130930, end: 20140124
  2. COUMADINE [Concomitant]
     Indication: ATRIAL FIBRILLATION
     Dosage: 4 MG, UNK
     Dates: start: 20140113
  3. ALDACTONE                          /00006201/ [Concomitant]
  4. LOXEN [Concomitant]
  5. TRIATEC                            /00116401/ [Concomitant]
  6. DIAMICRON [Concomitant]
  7. METFORMINE [Concomitant]
  8. DIFFU K [Concomitant]
  9. PARACETAMOL [Concomitant]
  10. LYRICA [Concomitant]
  11. EUPANTOL [Concomitant]
  12. TARDYFERON [Concomitant]
  13. PYOSTACINE [Concomitant]
  14. OXYNORM [Concomitant]
  15. LASILIX                            /00032601/ [Concomitant]
     Indication: PRODUCT USED FOR UNKNOWN INDICATION

REACTIONS (1)
  - Activated partial thromboplastin time prolonged [Recovering/Resolving]
